FAERS Safety Report 4353711-0 (Version None)
Quarter: 2004Q2

REPORT INFORMATION
  Report Type: 
  Country: None (occurrence: None)
  Receive Date: 20040430
  Receipt Date: 20040420
  Transmission Date: 20050107
  Serious: Yes (Hospitalization)
  Sender: FDA-Public Use
  Company Number: HR-JNJFOC-20040404262

PATIENT
  Age: 53 Year
  Sex: Female

DRUGS (3)
  1. INFLIXIMAB (INFLIXIMAB, RECOMBINANT) LYOPHILIZED POWDER [Suspect]
     Indication: RHEUMATOID ARTHRITIS
     Dosage: 3 MG/KG, 4 IN, INTRAVENOUS
     Route: 042
     Dates: start: 20010501
  2. METHOTREXATE [Concomitant]
  3. METHYLPREDNISOLONE [Concomitant]

REACTIONS (7)
  - COUGH [None]
  - DRUG INEFFECTIVE [None]
  - PHOTOSENSITIVE RASH [None]
  - PLEURAL EFFUSION [None]
  - POLYARTHRITIS [None]
  - PYREXIA [None]
  - SYSTEMIC LUPUS ERYTHEMATOSUS [None]
